FAERS Safety Report 7459728-1 (Version None)
Quarter: 2011Q2

REPORT INFORMATION
  Report Type: 
  Country: None (occurrence: None)
  Receive Date: 20110505
  Receipt Date: 20110422
  Transmission Date: 20111010
  Serious: Yes (Other)
  Sender: FDA-Public Use
  Company Number: PHEH2006US12894

PATIENT
  Sex: Male
  Weight: 81.633 kg

DRUGS (33)
  1. ANTIBIOTICS [Concomitant]
  2. HYDROCHLOROTHIAZIDE [Concomitant]
  3. AVELOX [Concomitant]
     Dosage: 1 DF, QD
     Route: 048
  4. AMPICILLIN [Concomitant]
     Dosage: 1 DF, QD
     Route: 048
  5. LEVAQUIN [Concomitant]
     Dosage: 500 MG, QD
     Route: 048
  6. CIPRO [Concomitant]
     Dosage: 500 MG, QD
     Route: 048
  7. LIPITOR [Concomitant]
     Dosage: 1 DF, QD
  8. RHINOCORT [Concomitant]
     Dosage: 1 SPRAY EACH NOSTRIL
     Route: 045
  9. CLINDAMYCIN [Suspect]
     Indication: PRODUCT USED FOR UNKNOWN INDICATION
     Dosage: UNK
     Dates: start: 20091101
  10. CLINDAMYCIN [Concomitant]
     Dosage: 1 DF, QD
     Route: 048
  11. ZOMETA [Suspect]
     Dosage: 4MG
     Route: 042
     Dates: start: 20040101, end: 20050901
  12. NASACORT [Concomitant]
     Dosage: 2 SPRAY EACH NOSTRIL
     Route: 045
  13. LORAZEPAM [Concomitant]
  14. ASTELIN [Concomitant]
     Dosage: 1 SPRAY
     Route: 048
  15. PROTOPIC [Concomitant]
     Dosage: APPLY TWICE DAILY
     Route: 061
  16. LOPRESSOR [Concomitant]
     Indication: HYPERTENSION
     Dosage: 1 DF, QD
     Route: 048
  17. CODEINE [Concomitant]
  18. MONOPRIL [Concomitant]
     Route: 048
  19. FLOMAX [Concomitant]
     Dosage: 0.4 MG
     Route: 048
  20. HYDROCODONE BITARTRATE [Concomitant]
  21. NIFEREX (POLYSACCHARIDE-IRON COMPLEX) [Concomitant]
     Dosage: 1 DF, QD
  22. PREVACID [Concomitant]
     Dosage: 1 DF, BID
     Route: 048
  23. FLUCONAZOLE [Concomitant]
     Dosage: 1 DF, QD
     Route: 048
  24. CLODERM [Concomitant]
     Dosage: APPLY TWICE DAILY
     Route: 061
  25. TOPROL-XL [Concomitant]
     Dosage: 1 DF, QD
  26. LUPRON [Concomitant]
  27. CASODEX [Concomitant]
     Dosage: UNK
     Dates: start: 20040101
  28. XYZAL [Concomitant]
  29. CHLORHEXIDINE GLUCONATE [Concomitant]
  30. OFLOXACIN [Concomitant]
  31. TRIAMTEREN [Concomitant]
     Route: 048
  32. FOLIC ACID [Concomitant]
  33. DOXYCYCLINE [Concomitant]
     Dosage: 1 DF, QD
     Route: 048

REACTIONS (56)
  - TENDONITIS [None]
  - ANAEMIA [None]
  - COLON ADENOMA [None]
  - PULMONARY GRANULOMA [None]
  - DYSPNOEA [None]
  - PULMONARY CALCIFICATION [None]
  - OSTEOARTHRITIS [None]
  - LUMBAR SPINE FLATTENING [None]
  - MITRAL VALVE INCOMPETENCE [None]
  - TRICUSPID VALVE INCOMPETENCE [None]
  - ABSCESS [None]
  - BONE DISORDER [None]
  - CONGENITAL KNEE DEFORMITY [None]
  - KERATOCONJUNCTIVITIS SICCA [None]
  - CATARACT [None]
  - AORTIC ANEURYSM [None]
  - OSTEONECROSIS OF JAW [None]
  - TOOTH DISORDER [None]
  - OPEN WOUND [None]
  - TINNITUS [None]
  - NASAL TURBINATE HYPERTROPHY [None]
  - UPPER RESPIRATORY TRACT INFECTION [None]
  - FISTULA [None]
  - INTERVERTEBRAL DISC DEGENERATION [None]
  - SWELLING FACE [None]
  - OTITIS MEDIA [None]
  - EUSTACHIAN TUBE DYSFUNCTION [None]
  - HYPOAESTHESIA [None]
  - RENAL CYST [None]
  - PURULENT DISCHARGE [None]
  - OSTEOCHONDROSIS [None]
  - INTESTINAL MUCOSAL HYPERTROPHY [None]
  - HAEMORRHOIDAL HAEMORRHAGE [None]
  - IMPAIRED HEALING [None]
  - SCOLIOSIS [None]
  - RHINITIS [None]
  - DEAFNESS [None]
  - LARYNGITIS [None]
  - PAIN IN JAW [None]
  - OSTEOMYELITIS [None]
  - BACK PAIN [None]
  - INTERVERTEBRAL DISC PROTRUSION [None]
  - FLANK PAIN [None]
  - FACIAL PAIN [None]
  - EAR DISORDER [None]
  - NASAL CONGESTION [None]
  - PURULENCE [None]
  - PIGMENTATION DISORDER [None]
  - DERMATITIS [None]
  - TONGUE DISCOLOURATION [None]
  - GLAUCOMA [None]
  - GINGIVAL DISORDER [None]
  - INFLAMMATION [None]
  - SERRATIA INFECTION [None]
  - UPPER-AIRWAY COUGH SYNDROME [None]
  - PATELLOFEMORAL PAIN SYNDROME [None]
